FAERS Safety Report 12127175 (Version 2)
Quarter: 2016Q1

REPORT INFORMATION
  Report Type: Spontaneous
  Country: CZ (occurrence: CZ)
  Receive Date: 20160229
  Receipt Date: 20160302
  Transmission Date: 20160526
  Serious: No
  Sender: FDA-Public Use
  Company Number: CZ-SA-2016SA028919

PATIENT
  Sex: Female

DRUGS (5)
  1. AUBAGIO [Suspect]
     Active Substance: TERIFLUNOMIDE
     Indication: RELAPSING-REMITTING MULTIPLE SCLEROSIS
     Route: 048
     Dates: start: 20150806, end: 201602
  2. MEDROL [Concomitant]
     Active Substance: METHYLPREDNISOLONE
  3. VIGANTOL [Concomitant]
  4. DETRALEX [Concomitant]
     Active Substance: DIOSMIN\HESPERIDIN
  5. BATRAFEN [Concomitant]
     Indication: FUNGAL INFECTION

REACTIONS (1)
  - Dyspnoea [Recovered/Resolved]

NARRATIVE: CASE EVENT DATE: 201511
